FAERS Safety Report 5238296-9 (Version None)
Quarter: 2007Q1

REPORT INFORMATION
  Report Type: 
  Country: None (occurrence: None)
  Receive Date: 20070209
  Receipt Date: 20070209
  Transmission Date: 20070707
  Serious: Yes (Hospitalization)
  Sender: FDA-Public Use
  Company Number: None

PATIENT
  Age: 56 Year
  Sex: Female

DRUGS (6)
  1. CETUXIMAB [Suspect]
     Indication: BREAST CANCER METASTATIC
     Dosage: 490 MG WEEKLY IV
     Route: 042
     Dates: start: 20061229, end: 20070117
  2. CARBOPLATIN [Suspect]
     Indication: BREAST CANCER METASTATIC
     Dosage: 482 MG WEEKLY IV
     Route: 042
     Dates: start: 20061229, end: 20070110
  3. XELODA [Concomitant]
  4. ZYPREXA [Concomitant]
  5. LEXAPRO [Concomitant]
  6. OXYCONTIN [Concomitant]

REACTIONS (1)
  - HEPATIC ENCEPHALOPATHY [None]
